FAERS Safety Report 5672502-1 (Version None)
Quarter: 2008Q1

REPORT INFORMATION
  Report Type: 
  Country: None (occurrence: None)
  Receive Date: 20080318
  Receipt Date: 20080318
  Transmission Date: 20080703
  Serious: No
  Sender: FDA-Public Use
  Company Number: None

PATIENT
  Age: 44 Year
  Sex: Female
  Weight: 57.6068 kg

DRUGS (3)
  1. TAXOTERE [Suspect]
     Indication: RECURRENT CANCER
     Dosage: 66.4 MG IV WKLY X 2 WKS
     Route: 042
     Dates: start: 20080314
  2. TAXOTERE [Suspect]
     Indication: TONGUE NEOPLASM MALIGNANT STAGE UNSPECIFIED
     Dosage: 66.4 MG IV WKLY X 2 WKS
     Route: 042
     Dates: start: 20080314
  3. XANAX [Concomitant]

REACTIONS (4)
  - CHEST DISCOMFORT [None]
  - CHEST PAIN [None]
  - DYSPNOEA [None]
  - INFUSION RELATED REACTION [None]
